FAERS Safety Report 16101377 (Version 1)
Quarter: 2019Q1

REPORT INFORMATION
  Report Type: Spontaneous
  Country: GB (occurrence: GB)
  Receive Date: 20190321
  Receipt Date: 20190321
  Transmission Date: 20190418
  Serious: Yes (Life-Threatening)
  Sender: FDA-Public Use
  Company Number: GB-PFIZER INC-2019119753

PATIENT
  Age: 28 Year
  Sex: Female
  Weight: 68 kg

DRUGS (1)
  1. CHAMPIX [Suspect]
     Active Substance: VARENICLINE TARTRATE
     Indication: SMOKING CESSATION THERAPY
     Dosage: 0.5 MG, UNK
     Route: 048
     Dates: start: 20190127, end: 20190215

REACTIONS (2)
  - Suicide attempt [Recovered/Resolved with Sequelae]
  - Anxiety [Unknown]

NARRATIVE: CASE EVENT DATE: 2019
